FAERS Safety Report 6748397-1 (Version None)
Quarter: 2010Q2

REPORT INFORMATION
  Report Type: 
  Country: None (occurrence: None)
  Receive Date: 20100601
  Receipt Date: 20100517
  Transmission Date: 20101027
  Serious: Yes (Other)
  Sender: FDA-Public Use
  Company Number: US-ASTRAZENECA-2010SE24801

PATIENT
  Age: 15153 Day
  Sex: Male
  Weight: 106.6 kg

DRUGS (4)
  1. SEROQUEL [Suspect]
     Route: 048
     Dates: start: 20040101
  2. HALDOL [Concomitant]
     Dates: start: 20040101
  3. RISPERDAL [Concomitant]
     Dates: start: 20040101
  4. COGENTIN [Concomitant]
     Dates: start: 20040101

REACTIONS (3)
  - DIABETES MELLITUS INADEQUATE CONTROL [None]
  - NEUROPATHY PERIPHERAL [None]
  - OSTEOARTHRITIS [None]
